FAERS Safety Report 17566040 (Version 1)
Quarter: 2020Q1

REPORT INFORMATION
  Report Type: Spontaneous
  Country: US (occurrence: US)
  Receive Date: 20200320
  Receipt Date: 20200320
  Transmission Date: 20200409
  Serious: No
  Sender: FDA-Public Use
  Company Number: US-VERTEX PHARMACEUTICALS-2020-005429

PATIENT
  Sex: Female
  Weight: 144 kg

DRUGS (1)
  1. TRIKAFTA [Suspect]
     Active Substance: ELEXACAFTOR\IVACAFTOR\TEZACAFTOR
     Indication: CYSTIC FIBROSIS
     Dosage: 100MGELEXACAFTOR/50MGTEZACAFTOR/75MGIVACAFTOR AM AND150MG IVACAFTOR PM
     Route: 048
     Dates: start: 20200212

REACTIONS (1)
  - Uterine leiomyoma [Not Recovered/Not Resolved]
